FAERS Safety Report 7720557-2 (Version None)
Quarter: 2011Q3

REPORT INFORMATION
  Report Type: 
  Country: None (occurrence: None)
  Receive Date: 20110831
  Receipt Date: 20110831
  Transmission Date: 20111222
  Serious: Yes (Hospitalization, Other)
  Sender: FDA-Public Use
  Company Number: None

PATIENT
  Age: 32 Year
  Sex: Female
  Weight: 90.718 kg

DRUGS (1)
  1. MYCOBUTIN [Suspect]
     Indication: TUBERCULOSIS
     Dosage: 300 MG
     Route: 002
     Dates: start: 20110706, end: 20110827

REACTIONS (4)
  - LIVER INJURY [None]
  - VOMITING [None]
  - PAIN [None]
  - HEADACHE [None]
